FAERS Safety Report 16983223 (Version 1)
Quarter: 2019Q4

REPORT INFORMATION
  Report Type: Spontaneous
  Country: US (occurrence: US)
  Receive Date: 20191101
  Receipt Date: 20191101
  Transmission Date: 20200122
  Serious: Yes (Death, Hospitalization)
  Sender: FDA-Public Use
  Company Number: NVSC2019US019851

PATIENT
  Age: 53 Year
  Sex: Female

DRUGS (3)
  1. RITUXIMAB. [Suspect]
     Active Substance: RITUXIMAB
     Indication: IMMUNOSUPPRESSION
     Dosage: UNK
     Route: 065
  2. PREDNISONE. [Suspect]
     Active Substance: PREDNISONE
     Indication: IMMUNOSUPPRESSION
     Dosage: UNK
     Route: 065
  3. HYDROXYCHLOROQUINE [Suspect]
     Active Substance: HYDROXYCHLOROQUINE
     Indication: IMMUNOSUPPRESSION
     Dosage: UNK
     Route: 065

REACTIONS (15)
  - Splenomegaly [Fatal]
  - Haemophagocytic lymphohistiocytosis [Fatal]
  - Pancytopenia [Fatal]
  - Haematochezia [Unknown]
  - Escherichia infection [Unknown]
  - Myositis [Fatal]
  - Ulcer [Fatal]
  - Acute kidney injury [Unknown]
  - Hypoxia [Unknown]
  - Hypotension [Unknown]
  - Respiratory tract infection fungal [Unknown]
  - Liver injury [Unknown]
  - Mental disorder [Unknown]
  - Fungal skin infection [Unknown]
  - Pyrexia [Fatal]
